APPROVED DRUG PRODUCT: EMTRICITABINE AND TENOFOVIR ALAFENAMIDE FUMARATE
Active Ingredient: EMTRICITABINE; TENOFOVIR ALAFENAMIDE FUMARATE
Strength: 120MG;EQ 15MG BASE
Dosage Form/Route: TABLET;ORAL
Application: A214053 | Product #001
Applicant: APOTEX INC
Approved: May 17, 2024 | RLD: No | RS: No | Type: DISCN